FAERS Safety Report 6667199-8 (Version None)
Quarter: 2010Q2

REPORT INFORMATION
  Report Type: 
  Country: None (occurrence: None)
  Receive Date: 20100401
  Receipt Date: 20100401
  Transmission Date: 20101027
  Serious: No
  Sender: FDA-Public Use
  Company Number: None

PATIENT
  Age: 69 Year
  Sex: Male
  Weight: 102.0593 kg

DRUGS (1)
  1. LYRICA [Suspect]
     Indication: BACK PAIN
     Dosage: 150 MG AM AND PM
     Dates: start: 20050102, end: 20100315

REACTIONS (2)
  - BURNING SENSATION [None]
  - HYPOAESTHESIA FACIAL [None]
